FAERS Safety Report 7977530-9 (Version None)
Quarter: 2011Q4

REPORT INFORMATION
  Report Type: 
  Country: None (occurrence: None)
  Receive Date: 20111214
  Receipt Date: 20111121
  Transmission Date: 20120403
  Serious: No
  Sender: FDA-Public Use
  Company Number: US-AMGEN-USASP2011061216

PATIENT
  Sex: Male

DRUGS (1)
  1. ENBREL [Suspect]
     Indication: PSORIASIS
     Dosage: 50 MG, 2 TIMES/WK
     Dates: start: 20111101

REACTIONS (6)
  - FATIGUE [None]
  - INCORRECT DOSE ADMINISTERED [None]
  - SLEEP APNOEA SYNDROME [None]
  - DIZZINESS [None]
  - HYPERTENSION [None]
  - INSOMNIA [None]
